FAERS Safety Report 8584205-4 (Version None)
Quarter: 2012Q3

REPORT INFORMATION
  Report Type: 
  Country: None (occurrence: None)
  Receive Date: 20120810
  Receipt Date: 20120802
  Transmission Date: 20120928
  Serious: Yes (Other)
  Sender: FDA-Public Use
  Company Number: FR-BIOGENIDEC-2012BI014946

PATIENT
  Age: 31 Year
  Sex: Female
  Weight: 67 kg

DRUGS (5)
  1. VITAMIN D [Concomitant]
     Indication: HYPOVITAMINOSIS
     Route: 048
  2. EBASTINE [Concomitant]
     Indication: HYPERSENSITIVITY
     Route: 048
  3. TYSABRI [Suspect]
     Indication: MULTIPLE SCLEROSIS
     Route: 042
     Dates: start: 20081204
  4. MODAFINIL [Concomitant]
  5. CLONAZEPAM [Concomitant]
     Indication: PAIN
     Route: 048

REACTIONS (1)
  - LUNG NEOPLASM [None]
